FAERS Safety Report 10373711 (Version 1)
Quarter: 2014Q1

REPORT INFORMATION
  Report Type: Spontaneous
  Country: US (occurrence: None)
  Receive Date: 20140306
  Receipt Date: 20140306
  Transmission Date: 20141002
  Serious: Yes (Other)
  Sender: FDA-Public Use
  Company Number: 163-21880-13023936

PATIENT
  Age: 77 Year
  Sex: Female
  Weight: 68 kg

DRUGS (10)
  1. REVLIMID (LENALIDOMIDE) (10 MILLIGRAM, CAPSULES) [Suspect]
     Indication: PLASMA CELL MYELOMA
     Dosage: 10 MG, 21 IN 21 D, PO
     Route: 048
     Dates: start: 201112
  2. VELCADE (BORTEZOMIB) (UNKNOWN) [Suspect]
     Indication: PLASMA CELL MYELOMA
     Dosage: 66, 188
  3. POTASSIUM CL (POTASSIUM CHLORIDE) (SUSTAINED-RELEASE TABLET) [Concomitant]
  4. CALCIUM 1000 + D3 (CALCIUM D3 ^STADA^) [Concomitant]
  5. CENTRUM MULTIVITAMINS (CENTRUM) (CHEWABLE TABLET) [Concomitant]
  6. AMLODIPINE BESYLATE (AMLODIPINE BESILATE) (TABLETS) [Concomitant]
  7. ASPIRIN (ACETYLSALICYLIC ACID) (TABLETS) [Concomitant]
  8. ALL DAY CALCIUM (CALCIUM) (TABLETS) [Concomitant]
  9. BIOTIN PLUS CALCIUM AND VITAMIN D3 (BIOTIN) (UNKNOWN) [Concomitant]
  10. CENTRUM MULTIVITAMINS (CENTRUM) [Concomitant]

REACTIONS (6)
  - Haemoglobin decreased [None]
  - Diarrhoea [None]
  - Muscle spasms [None]
  - Pruritus [None]
  - Asthenia [None]
  - Chest pain [None]
